FAERS Safety Report 21405184 (Version 1)
Quarter: 2022Q4

REPORT INFORMATION
  Report Type: Spontaneous
  Country: US (occurrence: US)
  Receive Date: 20221004
  Receipt Date: 20221004
  Transmission Date: 20230113
  Serious: No
  Sender: FDA-Public Use
  Company Number: US-TEVA-2022-US-2075785

PATIENT
  Sex: Female

DRUGS (1)
  1. EPINEPHRINE [Suspect]
     Active Substance: EPINEPHRINE
     Indication: Arthropod sting
     Dosage: STRENGTH: 0.3 MG / 0.3 ML
     Route: 065

REACTIONS (3)
  - Expired product administered [Unknown]
  - Skin discolouration [Unknown]
  - Device defective [Unknown]

NARRATIVE: CASE EVENT DATE: 20220909
